FAERS Safety Report 10605772 (Version 2)
Quarter: 2015Q2

REPORT INFORMATION
  Report Type: Spontaneous
  Country: IT (occurrence: IT)
  Receive Date: 20141125
  Receipt Date: 20150406
  Transmission Date: 20150821
  Serious: Yes (Hospitalization)
  Sender: FDA-Public Use
  Company Number: IT-AUROBINDO-AUR-APL-2014-12296

PATIENT
  Age: 31 Year
  Sex: Male

DRUGS (1)
  1. LEVOFLOXACIN. [Suspect]
     Active Substance: LEVOFLOXACIN
     Indication: PROSTATITIS
     Dosage: 1 DF, TOTAL
     Route: 048
     Dates: start: 20141114, end: 20141114

REACTIONS (4)
  - Face oedema [Recovering/Resolving]
  - Lip oedema [Recovering/Resolving]
  - Tongue oedema [Recovering/Resolving]
  - Urticaria [Recovering/Resolving]

NARRATIVE: CASE EVENT DATE: 20141114
